FAERS Safety Report 25381077 (Version 1)
Quarter: 2025Q2

REPORT INFORMATION
  Report Type: Report from Study
  Country: DE (occurrence: DE)
  Receive Date: 20250530
  Receipt Date: 20250530
  Transmission Date: 20250717
  Serious: Yes (Other)
  Sender: ALEXION PHARMACEUTICALS
  Company Number: DE-AstraZeneca-2024A121594

PATIENT
  Age: 65 Year

DRUGS (6)
  1. OLAPARIB [Suspect]
     Active Substance: OLAPARIB
     Indication: Ovarian cancer
     Dosage: 400 MILLIGRAM, QD
  2. ROSUVASTATIN [Concomitant]
     Active Substance: ROSUVASTATIN
     Indication: Concomitant disease aggravated
     Dosage: 40 MILLIGRAM, QD
  3. VALSARTAN [Concomitant]
     Active Substance: VALSARTAN
     Indication: Concomitant disease aggravated
     Dosage: 160 MILLIGRAM, QD
  4. BISOPROLOL [Concomitant]
     Active Substance: BISOPROLOL
     Indication: Concomitant disease aggravated
     Dosage: 2.5 MILLIGRAM, QD
  5. ASPIRIN [Concomitant]
     Active Substance: ASPIRIN
     Indication: Concomitant disease aggravated
     Dosage: 100 MILLIGRAM, QD
  6. BEVACIZUMAB [Concomitant]
     Active Substance: BEVACIZUMAB
     Indication: Ovarian cancer
     Route: 065

REACTIONS (3)
  - Fatigue [Recovered/Resolved]
  - Angina unstable [Unknown]
  - Coronary artery stenosis [Unknown]
